FAERS Safety Report 7797747-6 (Version None)
Quarter: 2011Q4

REPORT INFORMATION
  Report Type: 
  Country: None (occurrence: None)
  Receive Date: 20111005
  Receipt Date: 20110926
  Transmission Date: 20120403
  Serious: Yes (Other)
  Sender: FDA-Public Use
  Company Number: PHHY2011US85557

PATIENT
  Age: 53 Year
  Sex: Female

DRUGS (6)
  1. BENZTROPINE MESYLATE [Concomitant]
     Dosage: 1 MG EVERY MORNING AND 0.5 MG AT BEDTIME
  2. CLOZAPINE [Suspect]
     Dosage: 500 MG, DAILY
  3. RISPERIDONE [Concomitant]
     Dosage: 6 MG, AT BED TIME
  4. CLOZAPINE [Suspect]
     Dosage: 500 MG, DAILY
  5. CLOZAPINE [Suspect]
     Dosage: 400 MG, UNK
  6. CLOZAPINE [Suspect]
     Dosage: 300 MG, DAILY

REACTIONS (5)
  - DROOLING [None]
  - URINARY TRACT INFECTION [None]
  - SALIVARY HYPERSECRETION [None]
  - FOOD CRAVING [None]
  - SCHIZOPHRENIA [None]
